FAERS Safety Report 15446436 (Version 1)
Quarter: 2018Q3

REPORT INFORMATION
  Report Type: Spontaneous
  Country: US (occurrence: US)
  Receive Date: 20180928
  Receipt Date: 20180928
  Transmission Date: 20181010
  Serious: No
  Sender: FDA-Public Use
  Company Number: US-AMGEN-USASP2018093704

PATIENT
  Age: 53 Year
  Sex: Female

DRUGS (1)
  1. PROLIA [Suspect]
     Active Substance: DENOSUMAB
     Indication: OSTEOPOROSIS POSTMENOPAUSAL
     Dosage: UNK
     Route: 065
     Dates: start: 20180525

REACTIONS (5)
  - Nausea [Recovered/Resolved]
  - Chills [Recovered/Resolved]
  - Malaise [Recovered/Resolved]
  - Vomiting [Recovered/Resolved]
  - Epicondylitis [Not Recovered/Not Resolved]

NARRATIVE: CASE EVENT DATE: 2018
